FAERS Safety Report 8492959-0 (Version None)
Quarter: 2012Q3

REPORT INFORMATION
  Report Type: 
  Country: None (occurrence: None)
  Receive Date: 20120706
  Receipt Date: 20120704
  Transmission Date: 20120928
  Serious: Yes (Disabling)
  Sender: FDA-Public Use
  Company Number: GB-GLAXOSMITHKLINE-B0812347A

PATIENT
  Age: 53 Year
  Sex: Female
  Weight: 75.74 kg

DRUGS (1)
  1. SUMATRIPTAN SUCCINATE [Suspect]
     Indication: MIGRAINE
     Dates: start: 20120417, end: 20120617

REACTIONS (2)
  - VOMITING [None]
  - NECK PAIN [None]
